FAERS Safety Report 4899455-8 (Version None)
Quarter: 2006Q1

REPORT INFORMATION
  Report Type: 
  Country: None (occurrence: None)
  Receive Date: 20060118
  Receipt Date: 20050610
  Transmission Date: 20060701
  Serious: No
  Sender: FDA-Public Use
  Company Number: 2005001107

PATIENT
  Age: 53 Year
  Sex: Male

DRUGS (1)
  1. TARCEVA [Suspect]
     Indication: RENAL CELL CARCINOMA STAGE UNSPECIFIED
     Dosage: 150 MG (QD) ORAL
     Route: 048

REACTIONS (5)
  - CONTUSION [None]
  - OEDEMA [None]
  - PAIN [None]
  - PHLEBITIS [None]
  - PRURITUS [None]
